FAERS Safety Report 5309762-2 (Version None)
Quarter: 2007Q2

REPORT INFORMATION
  Report Type: 
  Country: None (occurrence: None)
  Receive Date: 20070427
  Receipt Date: 20070209
  Transmission Date: 20071010
  Serious: No
  Sender: FDA-Public Use
  Company Number: US-GLAXOSMITHKLINE-A0631607A

PATIENT
  Age: 52 Year
  Sex: Female

DRUGS (6)
  1. ZOFRAN [Suspect]
     Indication: PROPHYLAXIS OF NAUSEA AND VOMITING
     Dosage: 8MG THREE TIMES PER DAY
     Route: 048
     Dates: start: 20061209, end: 20061210
  2. ADRIAMYCIN PFS [Concomitant]
     Route: 042
  3. VINCRISTINE [Concomitant]
     Route: 042
  4. CYTOXAN [Concomitant]
     Route: 042
  5. RITUXAN [Concomitant]
     Route: 042
  6. PREDNISONE TAB [Concomitant]
     Route: 048

REACTIONS (2)
  - EYE SWELLING [None]
  - VOMITING [None]
